FAERS Safety Report 13662823 (Version 2)
Quarter: 2019Q4

REPORT INFORMATION
  Report Type: Spontaneous
  Country: CA (occurrence: CA)
  Receive Date: 20170619
  Receipt Date: 20191101
  Transmission Date: 20200122
  Serious: Yes (Hospitalization, Other)
  Sender: FDA-Public Use
  Company Number: CA-BAXTER-2017BAX023446

PATIENT
  Age: 31 Year
  Sex: Female

DRUGS (33)
  1. THIOPENTAL [Suspect]
     Active Substance: THIOPENTAL
     Indication: ENDOTRACHEAL INTUBATION
     Dosage: DOSAGE FORM: INTRAVENOUS INFUSION
     Route: 042
  2. MAGNESIUM SULFATE. [Suspect]
     Active Substance: MAGNESIUM SULFATE
     Indication: STATUS EPILEPTICUS
     Dosage: DOSAGE FORM NOT SPECIFIED
     Route: 065
  3. CALCIUM CHLORIDE. [Suspect]
     Active Substance: CALCIUM CHLORIDE
     Indication: PRODUCT USED FOR UNKNOWN INDICATION
     Dosage: DOSAGE FORM: NOT SPECIFIED
     Route: 065
  4. PROPOFOL. [Suspect]
     Active Substance: PROPOFOL
     Indication: STATUS EPILEPTICUS
     Dosage: DOSAGE FORM: ORAL EMULSION
     Route: 042
  5. 3200 MCG/ML  DOPAMINE HYDROCHLORIDE AND 5% DEXTROSE INJECTION [Suspect]
     Active Substance: DOPAMINE HYDROCHLORIDE
     Indication: HYPOTENSION
     Route: 065
  6. THIOPENTAL [Suspect]
     Active Substance: THIOPENTAL
     Route: 042
  7. THIOPENTAL [Suspect]
     Active Substance: THIOPENTAL
     Route: 042
  8. PROPOFOL. [Suspect]
     Active Substance: PROPOFOL
     Indication: SEIZURE
     Route: 065
  9. PHENYTOIN. [Suspect]
     Active Substance: PHENYTOIN
     Indication: SEIZURE
     Route: 065
  10. PROPOFOL. [Suspect]
     Active Substance: PROPOFOL
     Route: 042
  11. PROPOFOL. [Suspect]
     Active Substance: PROPOFOL
     Indication: STATUS EPILEPTICUS
     Route: 042
  12. METOCLOPRAMIDE HYDROCHLORIDE. [Suspect]
     Active Substance: METOCLOPRAMIDE HYDROCHLORIDE
     Indication: PROPHYLAXIS
     Route: 042
  13. SODIUM CITRATE. [Suspect]
     Active Substance: SODIUM CITRATE
     Indication: PROPHYLAXIS
     Dosage: DOSAGE FORM NOT SPECIFIED
     Route: 048
  14. THIOPENTAL [Suspect]
     Active Substance: THIOPENTAL
     Dosage: DOSAGE FORM: INTRAVENOUS INFUSION
     Route: 042
  15. 50% DEXTROSE INJ, USP [Suspect]
     Active Substance: DEXTROSE
     Indication: PRODUCT USED FOR UNKNOWN INDICATION
     Route: 042
  16. PROPOFOL. [Suspect]
     Active Substance: PROPOFOL
     Indication: STATUS EPILEPTICUS
     Route: 042
  17. PROPOFOL. [Suspect]
     Active Substance: PROPOFOL
     Indication: SEIZURE
     Route: 042
  18. THIOPENTAL [Suspect]
     Active Substance: THIOPENTAL
     Indication: SEIZURE
     Route: 042
  19. THIOPENTAL [Suspect]
     Active Substance: THIOPENTAL
     Route: 042
  20. DIAZEPAM. [Suspect]
     Active Substance: DIAZEPAM
     Indication: STATUS EPILEPTICUS
     Dosage: DOSAGE FORM NOT SPECIFIED
     Route: 065
  21. SUCCINYLCHOLINE CHLORIDE. [Suspect]
     Active Substance: SUCCINYLCHOLINE CHLORIDE
     Indication: ENDOTRACHEAL INTUBATION
     Route: 065
  22. THIOPENTAL [Suspect]
     Active Substance: THIOPENTAL
     Indication: STATUS EPILEPTICUS
     Dosage: DOSAGE FORM: INTRAVENOUS INFUSION
     Route: 042
  23. THIOPENTAL [Suspect]
     Active Substance: THIOPENTAL
     Route: 042
  24. THIOPENTAL [Suspect]
     Active Substance: THIOPENTAL
     Dosage: DOSAGE FORM: INTRAVENOUS INFUSION
     Route: 042
  25. THIOPENTAL [Suspect]
     Active Substance: THIOPENTAL
     Route: 042
  26. PHENYLEPHRINE [Suspect]
     Active Substance: PHENYLEPHRINE HYDROCHLORIDE
     Indication: HYPOTENSION
     Dosage: SOLUTION OPHTHALMIC
     Route: 065
  27. PROPOFOL. [Suspect]
     Active Substance: PROPOFOL
     Dosage: DOSAGE FORM: ORAL EMULSION
     Route: 042
  28. ATIVAN [Suspect]
     Active Substance: LORAZEPAM
     Indication: BIPOLAR DISORDER
     Dosage: DOSAGE FORM NOT SPECIFIED
     Route: 065
  29. DIAZEPAM. [Suspect]
     Active Substance: DIAZEPAM
     Indication: SEIZURE
     Route: 065
  30. LORAZEPAM. [Suspect]
     Active Substance: LORAZEPAM
     Indication: STATUS EPILEPTICUS
     Dosage: DOSAGE FORM NOT SPECIFIED
     Route: 065
  31. MIDAZOLAM [Suspect]
     Active Substance: MIDAZOLAM HYDROCHLORIDE
     Indication: SEIZURE
     Route: 065
  32. PAROXETINE HYDROCHLORIDE. [Suspect]
     Active Substance: PAROXETINE HYDROCHLORIDE
     Indication: BIPOLAR DISORDER
     Route: 065
  33. SUCCINYLCHOLINE [Suspect]
     Active Substance: SUCCINYLCHOLINE
     Indication: ENDOTRACHEAL INTUBATION
     Route: 042

REACTIONS (21)
  - Blood calcium decreased [Recovered/Resolved]
  - Electroencephalogram abnormal [Recovered/Resolved]
  - Seizure [Recovered/Resolved]
  - Encephalopathy [Recovered/Resolved]
  - Clonus [Recovered/Resolved]
  - Oxygen saturation abnormal [Recovered/Resolved]
  - Diabetes insipidus [Recovered/Resolved]
  - Blood pH decreased [Recovered/Resolved]
  - PO2 increased [Recovered/Resolved]
  - Foetal death [Not Recovered/Not Resolved]
  - Blood bicarbonate decreased [Recovered/Resolved]
  - Blood magnesium decreased [Recovered/Resolved]
  - PCO2 increased [Recovered/Resolved]
  - Status epilepticus [Recovered/Resolved]
  - Left ventricular dysfunction [Recovered/Resolved]
  - Renal impairment [Recovered/Resolved]
  - Loss of consciousness [Recovered/Resolved]
  - Renal ischaemia [Recovered/Resolved]
  - Hypotension [Recovered/Resolved]
  - Exposure during pregnancy [Recovered/Resolved]
  - Drug ineffective [Recovered/Resolved]
